FAERS Safety Report 21510092 (Version 1)
Quarter: 2022Q4

REPORT INFORMATION
  Report Type: Report from Study
  Country: US (occurrence: US)
  Receive Date: 20221026
  Receipt Date: 20221026
  Transmission Date: 20230113
  Serious: No
  Sender: FDA-Public Use
  Company Number: US-ABBVIE-4173214

PATIENT
  Sex: Male

DRUGS (3)
  1. HUMIRA [Suspect]
     Active Substance: ADALIMUMAB
     Indication: Rheumatoid arthritis
     Route: 058
  2. Pfizer/BioNTech [Concomitant]
     Indication: COVID-19 immunisation
     Dosage: ONCE, FIRST DOSE
     Route: 030
     Dates: start: 20210308, end: 20210308
  3. Pfizer/BioNTech [Concomitant]
     Indication: COVID-19 immunisation
     Dosage: ONCE, SECOND DOSE
     Dates: start: 20210331, end: 20210331

REACTIONS (3)
  - Injection site irritation [Unknown]
  - Therapeutic response shortened [Unknown]
  - Pain [Unknown]
